FAERS Safety Report 15280334 (Version 1)
Quarter: 2018Q3

REPORT INFORMATION
  Report Type: Spontaneous
  Country: CY (occurrence: CY)
  Receive Date: 20180815
  Receipt Date: 20180815
  Transmission Date: 20181010
  Serious: Yes (Other)
  Sender: FDA-Public Use
  Company Number: CY-PFIZER INC-2018324203

PATIENT
  Sex: Male

DRUGS (1)
  1. GEODON [Suspect]
     Active Substance: ZIPRASIDONE HYDROCHLORIDE\ZIPRASIDONE MESYLATE
     Dosage: 20 MG, ONCE  A DAY
     Dates: start: 20180808, end: 201808

REACTIONS (2)
  - Arrhythmia [Unknown]
  - Irregular breathing [Unknown]

NARRATIVE: CASE EVENT DATE: 201808
